FAERS Safety Report 13484818 (Version 1)
Quarter: 2017Q2

REPORT INFORMATION
  Report Type: Spontaneous
  Country: US (occurrence: US)
  Receive Date: 20170426
  Receipt Date: 20170426
  Transmission Date: 20170830
  Serious: No
  Sender: FDA-Public Use
  Company Number: US-PFIZER INC-2017179239

PATIENT
  Age: 52 Year
  Sex: Female

DRUGS (11)
  1. ASHWAGANDHA [Concomitant]
     Active Substance: HERBALS
     Dosage: 2 DF, DAILY
  2. VITAMIN D [Concomitant]
     Active Substance: CHOLECALCIFEROL
  3. BUSPIRONE [Concomitant]
     Active Substance: BUSPIRONE HYDROCHLORIDE
     Indication: ANXIETY
     Dosage: 15 MG, 2X/DAY(TWICE DAILY)
  4. CALCIUM [Concomitant]
     Active Substance: CALCIUM
  5. ABILIFY [Concomitant]
     Active Substance: ARIPIPRAZOLE
     Indication: BIPOLAR DISORDER
     Dosage: 10 MG, DAILY
  6. VITAMIN C [Concomitant]
     Active Substance: ASCORBIC ACID
  7. TRAZODONE [Suspect]
     Active Substance: TRAZODONE HYDROCHLORIDE
     Indication: SLEEP DISORDER
     Dosage: 100 MG, 1X/DAY(1 NIGHT)
  8. FLUOXETINE [Concomitant]
     Active Substance: FLUOXETINE HYDROCHLORIDE
     Indication: DEPRESSION
     Dosage: 60 MG, DAILY
  9. LAMOTRIGINE. [Concomitant]
     Active Substance: LAMOTRIGINE
     Indication: BIPOLAR DISORDER
     Dosage: 200 MG, 2X/DAY
  10. BIOTIN [Concomitant]
     Active Substance: BIOTIN
  11. LYRICA [Suspect]
     Active Substance: PREGABALIN
     Indication: FIBROMYALGIA
     Dosage: 100 MG, 2X/DAY(AT BEDTIME)
     Route: 048

REACTIONS (1)
  - Somnolence [Unknown]
